FAERS Safety Report 11907186 (Version 2)
Quarter: 2016Q1

REPORT INFORMATION
  Report Type: Report from Study
  Country: US (occurrence: US)
  Receive Date: 20160111
  Receipt Date: 20160304
  Transmission Date: 20160526
  Serious: Yes (Hospitalization)
  Sender: FDA-Public Use
  Company Number: US-BAYER-2015-492507

PATIENT
  Age: 72 Year
  Sex: Female
  Weight: 81.63 kg

DRUGS (3)
  1. ADEMPAS [Suspect]
     Active Substance: RIOCIGUAT
     Indication: PULMONARY HYPERTENSION
     Dosage: UNK
     Route: 048
     Dates: start: 20151210
  2. LETAIRIS [Concomitant]
     Active Substance: AMBRISENTAN
  3. ADEMPAS [Suspect]
     Active Substance: RIOCIGUAT
     Indication: PULMONARY HYPERTENSION
     Dosage: 0.5 MG, TID (LAST SHIPPED 10-DEC-2015)
     Route: 048
     Dates: end: 20151222

REACTIONS (9)
  - Fatigue [Unknown]
  - Atrial fibrillation [Unknown]
  - Drug dose omission [None]
  - Pain in extremity [Unknown]
  - Blood pressure decreased [Unknown]
  - Pain in jaw [Recovering/Resolving]
  - Blood pressure increased [None]
  - Palpitations [Unknown]
  - Cardiac pacemaker insertion [Unknown]

NARRATIVE: CASE EVENT DATE: 20151216
